FAERS Safety Report 10883503 (Version 1)
Quarter: 2015Q1

REPORT INFORMATION
  Report Type: Report from Study
  Country: US (occurrence: US)
  Receive Date: 20150303
  Receipt Date: 20150303
  Transmission Date: 20150721
  Serious: Yes (Hospitalization)
  Sender: FDA-Public Use
  Company Number: US-ELI_LILLY_AND_COMPANY-US201306002905

PATIENT
  Age: 65 Year
  Sex: Female
  Weight: 64.85 kg

DRUGS (3)
  1. PLAVIX [Concomitant]
     Active Substance: CLOPIDOGREL BISULFATE
     Dosage: UNK, UNKNOWN
     Route: 065
  2. TADALAFIL [Suspect]
     Active Substance: TADALAFIL
     Indication: PULMONARY ARTERIAL HYPERTENSION
     Dosage: 40 MG, QD
     Route: 048
     Dates: start: 20120611
  3. TYVASO [Suspect]
     Active Substance: TREPROSTINIL
     Indication: PULMONARY ARTERIAL HYPERTENSION
     Dosage: 6 DF, QID
     Route: 055
     Dates: start: 20130321

REACTIONS (6)
  - Heart rate irregular [Unknown]
  - Abdominal discomfort [Unknown]
  - Coronary artery disease [Unknown]
  - Headache [Unknown]
  - Presyncope [Unknown]
  - Weight increased [Unknown]

NARRATIVE: CASE EVENT DATE: 20140813
